FAERS Safety Report 6978831-3 (Version None)
Quarter: 2010Q3

REPORT INFORMATION
  Report Type: 
  Country: None (occurrence: None)
  Receive Date: 20100913
  Receipt Date: 20100907
  Transmission Date: 20110219
  Serious: Yes (Death)
  Sender: FDA-Public Use
  Company Number: CN-SANOFI-AVENTIS-2010SA053752

PATIENT
  Age: 43 Year
  Sex: Male
  Weight: 70 kg

DRUGS (2)
  1. LANTUS [Suspect]
     Indication: DIABETES MELLITUS
     Route: 058
     Dates: start: 20061010, end: 20100730
  2. LANTUS [Suspect]
     Route: 058
     Dates: start: 20100731, end: 20100731

REACTIONS (2)
  - OVERDOSE [None]
  - SUDDEN DEATH [None]
